FAERS Safety Report 7966587-7 (Version None)
Quarter: 2011Q4

REPORT INFORMATION
  Report Type: 
  Country: None (occurrence: None)
  Receive Date: 20111209
  Receipt Date: 20111201
  Transmission Date: 20120403
  Serious: Yes (Hospitalization, Other)
  Sender: FDA-Public Use
  Company Number: AU-BRISTOL-MYERS SQUIBB COMPANY-15930043

PATIENT
  Age: 58 Year
  Sex: Female
  Weight: 120 kg

DRUGS (10)
  1. PREDNISONE TAB [Concomitant]
     Indication: RHEUMATOID ARTHRITIS
  2. NEXIUM [Concomitant]
  3. OXYCONTIN [Concomitant]
  4. METHOTREXATE [Concomitant]
     Indication: RHEUMATOID ARTHRITIS
  5. LEUCOVORIN CALCIUM [Concomitant]
  6. RANITIDINE [Concomitant]
  7. MICARDIS [Concomitant]
  8. ORENCIA [Suspect]
     Indication: RHEUMATOID ARTHRITIS
     Dosage: LAST DOSE:7JAN11
     Route: 042
     Dates: start: 20100709, end: 20110702
  9. MOBIC [Concomitant]
  10. PREMARIN [Concomitant]

REACTIONS (6)
  - LOWER RESPIRATORY TRACT INFECTION [None]
  - KIDNEY INFECTION [None]
  - CONVULSION [None]
  - HIP ARTHROPLASTY [None]
  - CYSTITIS [None]
  - SEPSIS [None]
